FAERS Safety Report 6262002-2 (Version None)
Quarter: 2009Q3

REPORT INFORMATION
  Report Type: 
  Country: None (occurrence: None)
  Receive Date: 20090709
  Receipt Date: 20090629
  Transmission Date: 20100115
  Serious: Yes (Other)
  Sender: FDA-Public Use
  Company Number: SK-ABBOTT-09P-260-0582546-00

PATIENT
  Sex: Male
  Weight: 73 kg

DRUGS (10)
  1. ZEMPLAR [Suspect]
     Indication: HYPERPARATHYROIDISM SECONDARY
     Route: 042
     Dates: start: 20090605, end: 20090608
  2. ASCORUTIN [Concomitant]
     Indication: DRUG USE FOR UNKNOWN INDICATION
     Route: 048
  3. EBRANTIL [Concomitant]
     Indication: HYPERTENSION
     Route: 048
  4. FRAXIPARIN [Concomitant]
     Indication: DRUG USE FOR UNKNOWN INDICATION
     Route: 058
  5. FUROSEMID [Concomitant]
     Indication: DRUG USE FOR UNKNOWN INDICATION
  6. TICLOPIDIN [Concomitant]
     Indication: DRUG USE FOR UNKNOWN INDICATION
  7. LOKREN [Concomitant]
     Indication: DRUG USE FOR UNKNOWN INDICATION
  8. LOMAC [Concomitant]
     Indication: DRUG USE FOR UNKNOWN INDICATION
  9. NEORECORMON [Concomitant]
     Indication: DRUG USE FOR UNKNOWN INDICATION
  10. SIMVACARD [Concomitant]
     Indication: DRUG USE FOR UNKNOWN INDICATION
     Route: 048

REACTIONS (4)
  - DRUG TOXICITY [None]
  - DYSPEPSIA [None]
  - HAEMATURIA [None]
  - HENOCH-SCHONLEIN PURPURA [None]
